FAERS Safety Report 15233287 (Version 1)
Quarter: 2018Q3

REPORT INFORMATION
  Report Type: Spontaneous
  Country: ZA (occurrence: ZA)
  Receive Date: 20180802
  Receipt Date: 20180802
  Transmission Date: 20181010
  Serious: Yes (Hospitalization)
  Sender: FDA-Public Use
  Company Number: ZA-ASTRAZENECA-2018SE96699

PATIENT
  Sex: Female

DRUGS (8)
  1. ZARTAN CO [Concomitant]
     Active Substance: HYDROCHLOROTHIAZIDE\LOSARTAN POTASSIUM
     Dosage: 50/12.5MG
  2. HUMALOG MIX [Concomitant]
     Active Substance: INSULIN LISPRO
     Dosage: 100IU
  3. DIAPHAGE [Concomitant]
     Active Substance: METFORMIN HYDROCHLORIDE
     Dosage: 500MG
  4. TRUSTAN [Suspect]
     Active Substance: ESOMEPRAZOLE
     Route: 048
     Dates: start: 201806
  5. ASPAVOR [Concomitant]
     Active Substance: ATORVASTATIN
     Dosage: 20MG
  6. ECOTRIN [Concomitant]
     Active Substance: ASPIRIN
     Dosage: 81MG
  7. BILOCOR [Concomitant]
     Active Substance: BISOPROLOL FUMARATE
     Dosage: 5MG
  8. CLOPIDOGREL [Concomitant]
     Active Substance: CLOPIDOGREL BISULFATE
     Dosage: 75MG

REACTIONS (3)
  - Gastric infection [Unknown]
  - Abdominal discomfort [Unknown]
  - Cystitis [Unknown]
